FAERS Safety Report 12152893 (Version 1)
Quarter: 2016Q1

REPORT INFORMATION
  Report Type: Spontaneous
  Country: US (occurrence: US)
  Receive Date: 20160305
  Receipt Date: 20160305
  Transmission Date: 20160526
  Serious: Yes (Other)
  Sender: FDA-Public Use
  Company Number: US-CIPLA LTD.-2016US01796

PATIENT

DRUGS (16)
  1. BEVACIZUMAB [Suspect]
     Active Substance: BEVACIZUMAB
     Indication: CHOLANGIOCARCINOMA
     Dosage: UNK
     Route: 065
     Dates: start: 201212
  2. MITOMYCIN C [Suspect]
     Active Substance: MITOMYCIN
     Indication: CHOLANGIOCARCINOMA
     Dosage: UNK
     Route: 065
     Dates: start: 201109
  3. FLUOROURACIL. [Suspect]
     Active Substance: FLUOROURACIL
     Dosage: UNK
     Route: 065
     Dates: start: 201212
  4. DOCETAXEL. [Suspect]
     Active Substance: DOCETAXEL
     Indication: CHOLANGIOCARCINOMA
     Dosage: UNK
     Route: 065
     Dates: start: 201109
  5. DOCETAXEL. [Suspect]
     Active Substance: DOCETAXEL
     Dosage: UNK
     Route: 065
     Dates: start: 201212
  6. LEUCOVORIN. [Suspect]
     Active Substance: LEUCOVORIN
     Indication: CHOLANGIOCARCINOMA
     Dosage: UNK
     Route: 065
     Dates: start: 201109
  7. MITOMYCIN C [Suspect]
     Active Substance: MITOMYCIN
     Dosage: UNK
     Route: 065
     Dates: start: 201212
  8. CAPECITABINE. [Suspect]
     Active Substance: CAPECITABINE
     Indication: CHOLANGIOCARCINOMA
     Dosage: UNK
     Route: 065
     Dates: start: 201109
  9. OXALIPLATIN. [Suspect]
     Active Substance: OXALIPLATIN
     Indication: CHOLANGIOCARCINOMA
     Dosage: UNK
     Route: 065
     Dates: start: 201109
  10. IRINOTECAN [Suspect]
     Active Substance: IRINOTECAN
     Dosage: UNK
     Route: 065
     Dates: start: 201212
  11. FLUOROURACIL. [Suspect]
     Active Substance: FLUOROURACIL
     Indication: CHOLANGIOCARCINOMA
     Dosage: UNK
     Route: 065
     Dates: start: 201109
  12. GEMCITABINE [Suspect]
     Active Substance: GEMCITABINE\GEMCITABINE HYDROCHLORIDE
     Indication: CHOLANGIOCARCINOMA
     Dosage: UNK
     Route: 065
     Dates: start: 201109
  13. LEUCOVORIN. [Suspect]
     Active Substance: LEUCOVORIN
     Dosage: UNK
     Route: 065
     Dates: start: 201212
  14. GEMCITABINE [Suspect]
     Active Substance: GEMCITABINE\GEMCITABINE HYDROCHLORIDE
     Dosage: UNK
     Route: 065
     Dates: start: 201212
  15. IRINOTECAN [Suspect]
     Active Substance: IRINOTECAN
     Indication: CHOLANGIOCARCINOMA
     Dosage: UNK
     Route: 065
     Dates: start: 201109
  16. OXALIPLATIN. [Suspect]
     Active Substance: OXALIPLATIN
     Dosage: UNK
     Route: 065
     Dates: start: 201212

REACTIONS (3)
  - Treatment failure [Unknown]
  - Disease progression [Unknown]
  - Hypertension [Unknown]
